FAERS Safety Report 26169907 (Version 1)
Quarter: 2025Q4

REPORT INFORMATION
  Report Type: Spontaneous
  Country: US (occurrence: US)
  Receive Date: 20251217
  Receipt Date: 20251217
  Transmission Date: 20260117
  Serious: No
  Sender: ABBVIE
  Company Number: US-ABBVIE-6592169

PATIENT
  Age: 65 Year
  Sex: Female

DRUGS (2)
  1. BOTOX COSMETIC [Suspect]
     Active Substance: ONABOTULINUMTOXINA
     Indication: Skin cosmetic procedure
     Dosage: TIME INTERVAL: AS NECESSARY: FREQUENCY: EVERY 6 MONTHS
     Route: 030
     Dates: start: 20240802, end: 20240802
  2. BOTOX COSMETIC [Suspect]
     Active Substance: ONABOTULINUMTOXINA
     Indication: Skin cosmetic procedure
     Dosage: TIME INTERVAL: AS NECESSARY: FREQUENCY: EVERY 6 MONTHS
     Route: 030
     Dates: start: 20251212, end: 20251212

REACTIONS (3)
  - Multiple use of single-use product [Unknown]
  - Injection site pain [Recovered/Resolved]
  - Product container issue [Not Recovered/Not Resolved]

NARRATIVE: CASE EVENT DATE: 20251212
